FAERS Safety Report 11581085 (Version 1)
Quarter: 2015Q4

REPORT INFORMATION
  Report Type: Spontaneous
  Country: US (occurrence: US)
  Receive Date: 20151001
  Receipt Date: 20151001
  Transmission Date: 20160304
  Serious: No
  Sender: FDA-Public Use
  Company Number: US-ROCHE-684473

PATIENT
  Age: 56 Year
  Sex: Female

DRUGS (3)
  1. PEGASYS [Suspect]
     Active Substance: PEGINTERFERON ALFA-2A
     Indication: HEPATITIS C
     Dosage: FORM: PREFILLED SYRINGE, THERAPY WAS SUSPENDED
     Route: 058
     Dates: start: 20100108, end: 20100120
  2. COPEGUS [Suspect]
     Active Substance: RIBAVIRIN
     Indication: HEPATITIS C
     Dosage: THERAPY WAS SUSPENDED
     Route: 048
     Dates: start: 20100108, end: 20100120
  3. TRAMADOL. [Concomitant]
     Active Substance: TRAMADOL
     Indication: PAIN
     Route: 065

REACTIONS (4)
  - Headache [Recovering/Resolving]
  - Dizziness [Not Recovered/Not Resolved]
  - Headache [Recovered/Resolved]
  - Sinusitis [Not Recovered/Not Resolved]

NARRATIVE: CASE EVENT DATE: 20100110
